FAERS Safety Report 17961057 (Version 1)
Quarter: 2020Q2

REPORT INFORMATION
  Report Type: Spontaneous
  Country: US (occurrence: US)
  Receive Date: 20200630
  Receipt Date: 20200630
  Transmission Date: 20200714
  Serious: Yes (Hospitalization)
  Sender: FDA-Public Use
  Company Number: US-INDIVIOR LIMITED-INDV-124736-2020

PATIENT
  Age: 41 Year
  Sex: Male

DRUGS (2)
  1. FENTANYL. [Suspect]
     Active Substance: FENTANYL
     Indication: PRODUCT USED FOR UNKNOWN INDICATION
     Dosage: HALF GRAM, UNKNOWN
     Route: 045
     Dates: start: 20200218, end: 20200410
  2. SUBLOCADE [Suspect]
     Active Substance: BUPRENORPHINE
     Indication: DRUG DEPENDENCE
     Dosage: 300 MILLIGRAM, QMO (TWO INJECTIONS)
     Route: 065
     Dates: start: 20200208

REACTIONS (3)
  - Insomnia [Unknown]
  - Drug abuse [Recovered/Resolved]
  - Drug detoxification [Unknown]

NARRATIVE: CASE EVENT DATE: 20200218
